FAERS Safety Report 21370922 (Version 1)
Quarter: 2022Q3

REPORT INFORMATION
  Report Type: Spontaneous
  Country: CH (occurrence: CH)
  Receive Date: 20220923
  Receipt Date: 20220923
  Transmission Date: 20221026
  Serious: Yes (Hospitalization, Other)
  Sender: FDA-Public Use
  Company Number: None

PATIENT

DRUGS (16)
  1. LAMICTAL [Suspect]
     Active Substance: LAMOTRIGINE
     Indication: Impulsive behaviour
     Dosage: UNK UNK, BID; LAMICTAL 150MG IN THE MORNING AND 200MG IN THE EVENING
     Route: 065
     Dates: end: 20220815
  2. LAMICTAL [Suspect]
     Active Substance: LAMOTRIGINE
     Indication: Anger
  3. LAMICTAL [Suspect]
     Active Substance: LAMOTRIGINE
     Indication: Borderline personality disorder
  4. TORADOL [Suspect]
     Active Substance: KETOROLAC TROMETHAMINE
     Indication: Product used for unknown indication
     Dosage: UNK
     Route: 065
     Dates: start: 20220815, end: 20220815
  5. TRAMADOL [Suspect]
     Active Substance: TRAMADOL
     Indication: Product used for unknown indication
     Dosage: UNK
     Route: 065
     Dates: start: 20220815, end: 20220815
  6. FLURAZEPAM HYDROCHLORIDE [Suspect]
     Active Substance: FLURAZEPAM HYDROCHLORIDE
     Indication: Product used for unknown indication
     Dosage: 30 MG, QD
     Route: 048
     Dates: end: 20220815
  7. QUETIAPINE [Suspect]
     Active Substance: QUETIAPINE
     Indication: Behaviour disorder
     Dosage: UNK;300MG 2X/D P.O. + 50MG 2X/D MAX IN RESERVE P.O.
     Route: 048
     Dates: end: 20220815
  8. QUETIAPINE [Suspect]
     Active Substance: QUETIAPINE
     Indication: Intellectual disability
  9. REMERON [Suspect]
     Active Substance: MIRTAZAPINE
     Indication: Product used for unknown indication
     Dosage: 15 MG, QD; 15MG 1X/D P.O.
     Route: 048
     Dates: end: 20220815
  10. LORAZEPAM [Suspect]
     Active Substance: LORAZEPAM
     Indication: Product used for unknown indication
     Dosage: 1 MG, TID (1 MG 3X/D P.O.)
     Route: 048
  11. TIVICAY [Concomitant]
     Active Substance: DOLUTEGRAVIR SODIUM
     Indication: High risk sexual behaviour
     Dosage: UNK, P.O
     Route: 048
  12. TRUVADA [Concomitant]
     Active Substance: EMTRICITABINE\TENOFOVIR DISOPROXIL FUMARATE
     Indication: High risk sexual behaviour
     Dosage: UNK, P.O.
     Route: 048
  13. BUTYLSCOPOLAMINE BROMIDE [Concomitant]
     Active Substance: BUTYLSCOPOLAMINE BROMIDE
     Indication: Product used for unknown indication
     Dosage: UNK; AS NECESSARY, P.O.
     Route: 048
  14. HALDOL [Concomitant]
     Active Substance: HALOPERIDOL
     Indication: Product used for unknown indication
     Dosage: UNK; AS NECESSARY, P.O.
     Route: 048
  15. PASPERTIN [Concomitant]
     Indication: Product used for unknown indication
     Dosage: UNK;AS NECESSARY, P.O.
     Route: 048
  16. DAFALGAN [Concomitant]
     Active Substance: ACETAMINOPHEN
     Indication: Product used for unknown indication
     Dosage: UNK; AS NECESSARY, P.O.
     Route: 048

REACTIONS (2)
  - Altered state of consciousness [Recovered/Resolved]
  - Intentional overdose [Recovered/Resolved]

NARRATIVE: CASE EVENT DATE: 20220815
